FAERS Safety Report 21189832 (Version 1)
Quarter: 2022Q3

REPORT INFORMATION
  Report Type: Spontaneous
  Country: US (occurrence: None)
  Receive Date: 20220808
  Receipt Date: 20220808
  Transmission Date: 20221027
  Serious: No
  Sender: FDA-Public Use
  Company Number: None

PATIENT
  Age: 43 Year
  Sex: Female

DRUGS (7)
  1. HALDOL [Suspect]
     Active Substance: HALOPERIDOL
     Indication: Migraine
     Route: 058
     Dates: start: 20210625, end: 20210625
  2. ZYRTEC [Concomitant]
     Active Substance: CETIRIZINE HYDROCHLORIDE
  3. CYMBALTA [Concomitant]
     Active Substance: DULOXETINE HYDROCHLORIDE
  4. LEVOTHYROXINE [Concomitant]
     Active Substance: LEVOTHYROXINE
  5. SINGULAIR [Concomitant]
     Active Substance: MONTELUKAST SODIUM
  6. ADVIL [Concomitant]
     Active Substance: IBUPROFEN
  7. PEPCID COMPLETE [Concomitant]

REACTIONS (3)
  - Psychomotor hyperactivity [None]
  - Tic [None]
  - Speech disorder [None]

NARRATIVE: CASE EVENT DATE: 20210625
